FAERS Safety Report 17489578 (Version 1)
Quarter: 2020Q1

REPORT INFORMATION
  Report Type: Spontaneous
  Country: PL (occurrence: PL)
  Receive Date: 20200303
  Receipt Date: 20200303
  Transmission Date: 20200409
  Serious: Yes (Other)
  Sender: FDA-Public Use
  Company Number: PL-MYLANLABS-2020M1022598

PATIENT
  Age: 69 Year
  Sex: Male

DRUGS (5)
  1. VENLAFAXINE [Suspect]
     Active Substance: VENLAFAXINE HYDROCHLORIDE
     Indication: ANTIDEPRESSANT THERAPY
     Dosage: UNK
     Route: 065
  2. PROPAFENONE. [Interacting]
     Active Substance: PROPAFENONE
     Indication: HYPERTENSION
  3. PERINDOPRIL [Concomitant]
     Active Substance: PERINDOPRIL
     Indication: HYPERTENSION
     Route: 065
  4. INDAPAMIDE. [Concomitant]
     Active Substance: INDAPAMIDE
     Indication: HYPERTENSION
     Route: 065
  5. PROPAFENONE. [Interacting]
     Active Substance: PROPAFENONE
     Indication: SUPRAVENTRICULAR TACHYCARDIA
     Dosage: UNK
     Route: 065

REACTIONS (4)
  - Bradycardia [Unknown]
  - Dizziness [Unknown]
  - Vision blurred [Unknown]
  - Drug interaction [Unknown]
